FAERS Safety Report 5758457-X (Version None)
Quarter: 2008Q2

REPORT INFORMATION
  Report Type: 
  Country: None (occurrence: None)
  Receive Date: 20080530
  Receipt Date: 20080516
  Transmission Date: 20081010
  Serious: Yes (Hospitalization)
  Sender: FDA-Public Use
  Company Number: 8032912

PATIENT
  Age: 82 Year
  Sex: Female

DRUGS (11)
  1. KEPPRA [Suspect]
     Indication: EPILEPSY
     Dosage: 1000 MG /D PO
     Route: 048
     Dates: start: 20070124
  2. LEVODOPA [Concomitant]
  3. MADOPAR [Concomitant]
  4. SELEGILIN [Concomitant]
  5. CYMBALTA [Concomitant]
  6. ASPIRIN [Concomitant]
  7. ENALAPRIL MALEATE [Concomitant]
  8. HYDROCHLOROTHIAZIDE [Concomitant]
  9. CARMEN [Concomitant]
  10. SPASYT [Concomitant]
  11. AERO PLUS [Concomitant]

REACTIONS (1)
  - CEREBROVASCULAR ACCIDENT [None]
